FAERS Safety Report 5148795-6 (Version None)
Quarter: 2006Q4

REPORT INFORMATION
  Report Type: 
  Country: None (occurrence: None)
  Receive Date: 20061113
  Receipt Date: 20061016
  Transmission Date: 20070319
  Serious: Yes (Other)
  Sender: FDA-Public Use
  Company Number: PHEH2006US12908

PATIENT
  Age: 32 Year
  Sex: Female
  Weight: 73.287 kg

DRUGS (6)
  1. TRAZODONE HCL [Concomitant]
     Indication: DEPRESSION
     Dosage: 50 MG, PRN
  2. KLONOPIN [Concomitant]
     Dosage: 1 MG, QD
     Route: 048
  3. DIOVAN HCT [Suspect]
     Indication: HYPERTENSION
     Dosage: 80 MG VAL/ 12.5 MG HCT, QD
     Route: 048
     Dates: start: 20060825, end: 20061013
  4. ZOLOFT [Concomitant]
     Indication: DEPRESSION
     Dosage: 100 MG, QD
  5. AMBIEN [Concomitant]
     Dosage: UNK, UNK
  6. LABETALOL HCL [Suspect]
     Dosage: 100 MG, BID
     Route: 048
     Dates: start: 20060701, end: 20061010

REACTIONS (36)
  - ALOPECIA [None]
  - ANXIETY [None]
  - ARTHRALGIA [None]
  - BACK PAIN [None]
  - BLOOD URINE PRESENT [None]
  - COUGH [None]
  - DEPRESSION [None]
  - DIARRHOEA [None]
  - DIZZINESS [None]
  - DYSPEPSIA [None]
  - DYSURIA [None]
  - FATIGUE [None]
  - FLATULENCE [None]
  - FLUID RETENTION [None]
  - FLUSHING [None]
  - HEART RATE IRREGULAR [None]
  - HYPERHIDROSIS [None]
  - HYPOTENSION [None]
  - INCREASED APPETITE [None]
  - INFLUENZA LIKE ILLNESS [None]
  - LIBIDO DECREASED [None]
  - MIGRAINE [None]
  - MYALGIA [None]
  - NAUSEA [None]
  - PARAESTHESIA [None]
  - POLLAKIURIA [None]
  - PYREXIA [None]
  - RASH PRURITIC [None]
  - RESTLESSNESS [None]
  - SCLERAL DISCOLOURATION [None]
  - SINUS CONGESTION [None]
  - THIRST [None]
  - URINARY TRACT INFECTION [None]
  - VISION BLURRED [None]
  - VOMITING [None]
  - WEIGHT INCREASED [None]
